FAERS Safety Report 9228825 (Version 2)
Quarter: 2013Q2

REPORT INFORMATION
  Report Type: Spontaneous
  Country: US (occurrence: US)
  Receive Date: 20130412
  Receipt Date: 20130425
  Transmission Date: 20140414
  Serious: No
  Sender: FDA-Public Use
  Company Number: US-009507513-1304USA005672

PATIENT
  Age: 60 Year
  Sex: Male

DRUGS (7)
  1. VICTRELIS [Suspect]
     Indication: HEPATITIS C
     Dosage: 800 MG, TID
     Route: 048
     Dates: start: 20130328
  2. RIBAPAK [Suspect]
  3. PEGASYS [Suspect]
  4. CYANOCOBALAMIN [Concomitant]
  5. MELOXICAM [Concomitant]
  6. MELATONIN [Suspect]
  7. IBUPROFEN [Concomitant]

REACTIONS (7)
  - Full blood count decreased [Unknown]
  - Haemorrhage [Unknown]
  - Abdominal pain [Unknown]
  - Anaemia [Unknown]
  - Fatigue [Unknown]
  - Dry mouth [Unknown]
  - Asthenia [Unknown]
